FAERS Safety Report 4834456-7 (Version None)
Quarter: 2005Q4

REPORT INFORMATION
  Report Type: 
  Country: None (occurrence: None)
  Receive Date: 20051122
  Receipt Date: 20041123
  Transmission Date: 20060501
  Serious: No
  Sender: FDA-Public Use
  Company Number: US-BRISTOL-MYERS SQUIBB COMPANY-12774428

PATIENT
  Age: 47 Year
  Sex: Male
  Weight: 91 kg

DRUGS (11)
  1. PRAVACHOL [Suspect]
     Indication: BLOOD CHOLESTEROL INCREASED
     Route: 048
     Dates: start: 20040301
  2. NIACIN [Concomitant]
  3. ZETIA [Concomitant]
  4. POLICOSANOL [Concomitant]
  5. COD LIVER OIL [Concomitant]
  6. FLAXSEED OIL [Concomitant]
  7. OMEGA-3 [Concomitant]
  8. FOLIC ACID [Concomitant]
  9. VITAMIN B6 [Concomitant]
  10. ASCORBIC ACID [Concomitant]
  11. VITAMIN E [Concomitant]

REACTIONS (1)
  - HEPATIC ENZYME INCREASED [None]
